FAERS Safety Report 13119268 (Version 1)
Quarter: 2017Q1

REPORT INFORMATION
  Report Type: Other
  Country: US (occurrence: US)
  Receive Date: 20170116
  Receipt Date: 20170116
  Transmission Date: 20170428
  Serious: Yes (Death)
  Sender: FDA-Public Use
  Company Number: US-LEHIGH_VALLEY-USA-POI0580201700019

PATIENT
  Age: 48 Year
  Sex: Female

DRUGS (8)
  1. BUPRENORPHINE. [Suspect]
     Active Substance: BUPRENORPHINE
     Dates: end: 2015
  2. ALPRAZOLAM. [Suspect]
     Active Substance: ALPRAZOLAM
     Dates: end: 2015
  3. DIAZEPAM. [Suspect]
     Active Substance: DIAZEPAM
     Dates: end: 2015
  4. CLONAZEPAM. [Suspect]
     Active Substance: CLONAZEPAM
     Dates: end: 2015
  5. DIPHENHYDRAMINE. [Suspect]
     Active Substance: DIPHENHYDRAMINE
     Dates: end: 2015
  6. OXYCODONE HCL CAPSULES [Suspect]
     Active Substance: OXYCODONE HYDROCHLORIDE
     Dates: end: 2015
  7. GABAPENTIN. [Suspect]
     Active Substance: GABAPENTIN
     Dates: end: 2015
  8. AMITRIPTYLINE [Suspect]
     Active Substance: AMITRIPTYLINE
     Dates: end: 2015

REACTIONS (3)
  - Cardiac arrest [Fatal]
  - Respiratory arrest [Fatal]
  - Poisoning deliberate [Fatal]

NARRATIVE: CASE EVENT DATE: 2015
